FAERS Safety Report 15819340 (Version 1)
Quarter: 2019Q1

REPORT INFORMATION
  Report Type: Report from Study
  Country: ES (occurrence: ES)
  Receive Date: 20190114
  Receipt Date: 20190114
  Transmission Date: 20190417
  Serious: Yes (Hospitalization)
  Sender: FDA-Public Use
  Company Number: ES-TEVA-2019-ES-997497

PATIENT
  Age: 12 Year
  Sex: Male
  Weight: 34.7 kg

DRUGS (11)
  1. RITUXIMAB (2814A) [Interacting]
     Active Substance: RITUXIMAB
     Indication: EPSTEIN-BARR VIRUS INFECTION
     Dosage: 375 MILLIGRAM DAILY;
     Route: 042
     Dates: start: 20170420, end: 20170505
  2. SEPTRIN FORTE 160 MG/800 MG COMPRIMIDOS, 20 COMPRIMIDOS [Concomitant]
     Active Substance: SULFAMETHOXAZOLE\TRIMETHOPRIM
     Indication: PROPHYLAXIS
     Route: 048
     Dates: start: 201704
  3. VITAMINA D [Concomitant]
     Indication: PROPHYLAXIS
     Dosage: 1 ML DAILY;
     Route: 048
     Dates: start: 201704
  4. OMEPRAZOL (2141A) [Concomitant]
     Active Substance: OMEPRAZOLE
     Indication: PROPHYLAXIS
     Dosage: 20 MILLIGRAM DAILY;
     Route: 048
     Dates: start: 201701
  5. AMOXICILINA (108A) [Concomitant]
     Active Substance: AMOXICILLIN
     Indication: PROPHYLAXIS
     Dosage: 500 MILLIGRAM DAILY;
     Route: 048
     Dates: start: 201607
  6. ACFOL 5 MG COMPRIMIDOS , 28 COMPRIMIDOS [Concomitant]
     Indication: PROPHYLAXIS
     Dosage: 5 MILLIGRAM DAILY;
     Route: 048
     Dates: start: 201705
  7. HIDROCORTISONA (54A) [Concomitant]
     Active Substance: HYDROCORTISONE
     Indication: PROPHYLAXIS
     Route: 048
     Dates: start: 201704
  8. BUDESONIDA (2291A) [Concomitant]
     Active Substance: BUDESONIDE
     Dosage: 4 MICROGRAM DAILY;
     Route: 055
     Dates: start: 201704
  9. POSACONAZOL (2996A) [Concomitant]
     Active Substance: POSACONAZOLE
     Indication: PROPHYLAXIS
     Route: 048
     Dates: start: 201704
  10. ACICLOVIR (201A) [Concomitant]
     Active Substance: ACYCLOVIR
     Indication: PROPHYLAXIS
     Route: 048
     Dates: start: 201704
  11. CICLOSPORINA (406A) [Suspect]
     Active Substance: CYCLOSPORINE
     Indication: IMMUNODEFICIENCY
     Dosage: 30 MILLIGRAM DAILY;
     Route: 048
     Dates: start: 201704

REACTIONS (2)
  - Drug interaction [Unknown]
  - Rhinovirus infection [Recovered/Resolved]

NARRATIVE: CASE EVENT DATE: 20170719
